FAERS Safety Report 7843345-5 (Version None)
Quarter: 2011Q4

REPORT INFORMATION
  Report Type: 
  Country: None (occurrence: None)
  Receive Date: 20111025
  Receipt Date: 20111020
  Transmission Date: 20120403
  Serious: Yes (Hospitalization, Other)
  Sender: FDA-Public Use
  Company Number: DE-SANOFI-AVENTIS-2011SA068791

PATIENT
  Age: 71 Year
  Sex: Female
  Weight: 55 kg

DRUGS (9)
  1. FALITHROM ^HEXAL^ [Concomitant]
     Dosage: SINGLE DOSE DIFFERENT, ACCORDING TO INR
     Route: 048
     Dates: start: 20110414, end: 20110421
  2. VALERIANA OFFICINALIS [Concomitant]
     Route: 048
     Dates: start: 20110413, end: 20110413
  3. XIMOVAN [Concomitant]
     Route: 048
     Dates: start: 20110412, end: 20110511
  4. ENOXAPARIN SODIUM [Suspect]
     Indication: DEEP VEIN THROMBOSIS
     Route: 058
     Dates: start: 20110412, end: 20110505
  5. NOVAMINSULFON [Suspect]
     Route: 048
     Dates: start: 20110413, end: 20110428
  6. LEVOTHYROXINE SODIUM [Concomitant]
     Route: 048
     Dates: start: 20070101
  7. PANTOPRAZOLE SODIUM [Concomitant]
     Route: 048
     Dates: start: 20110412, end: 20110513
  8. VALERIANA OFFICINALIS [Concomitant]
     Route: 048
     Dates: start: 20110416, end: 20110417
  9. OMEPRAZOLE [Concomitant]
     Route: 048
     Dates: start: 20060101, end: 20110411

REACTIONS (1)
  - HEPATITIS ACUTE [None]
